FAERS Safety Report 10007899 (Version 2)
Quarter: 2014Q1

REPORT INFORMATION
  Report Type: Report from Study
  Country: US (occurrence: US)
  Receive Date: 20140313
  Receipt Date: 20140313
  Transmission Date: 20141002
  Serious: Yes (Hospitalization)
  Sender: FDA-Public Use
  Company Number: US-BRISTOL-MYERS SQUIBB COMPANY-19846468

PATIENT
  Age: 71 Year
  Sex: Female
  Weight: 100.4 kg

DRUGS (14)
  1. PACLITAXEL [Suspect]
     Indication: NON-SMALL CELL LUNG CANCER
     Dosage: DAY 1 OF 3 WEEKS CYCLE?LAST DOSE PRIOR TO EVENT:10SEP2013
     Route: 042
     Dates: start: 20130731
  2. CARBOPLATIN [Suspect]
     Indication: NON-SMALL CELL LUNG CANCER
     Dosage: LAST DOSE PRIOR TO EVENT:10SEP2013?1DF=6 AUC
     Route: 042
     Dates: start: 20130731
  3. MS CONTIN [Concomitant]
     Indication: PAIN
     Dates: start: 20130806
  4. DEXAMETHASONE [Concomitant]
     Indication: SWELLING
     Dates: start: 20130730
  5. BENADRYL [Concomitant]
     Dates: start: 20130730
  6. ALOXI [Concomitant]
     Indication: NAUSEA
     Dates: start: 20130730
  7. EMEND [Concomitant]
     Indication: NAUSEA
     Dates: start: 20130730
  8. ZANTAC [Concomitant]
     Indication: GASTROINTESTINAL DISORDER
     Dates: start: 20130730
  9. CHONDROITIN SULFATE + GLUCOSAMINE [Concomitant]
     Dates: start: 2012
  10. COMPAZINE [Concomitant]
     Indication: NAUSEA
     Dates: start: 20130806
  11. COMPAZINE [Concomitant]
     Indication: VOMITING
     Dates: start: 20130806
  12. LISINOPRIL + HCTZ [Concomitant]
     Indication: HYPERTENSION
     Dates: start: 2008
  13. VITAMIN C [Concomitant]
     Dates: start: 2012
  14. BACTRIM [Concomitant]
     Dates: start: 20130907, end: 20130917

REACTIONS (2)
  - Dehydration [Recovered/Resolved]
  - Febrile neutropenia [Recovered/Resolved]
